FAERS Safety Report 18367469 (Version 8)
Quarter: 2021Q1

REPORT INFORMATION
  Report Type: Report from Study
  Country: US (occurrence: US)
  Receive Date: 20201009
  Receipt Date: 20210316
  Transmission Date: 20210419
  Serious: Yes (Other)
  Sender: FDA-Public Use
  Company Number: NVSC2020US267391

PATIENT
  Age: 21 Year
  Sex: Male

DRUGS (10)
  1. ILARIS [Suspect]
     Active Substance: CANAKINUMAB
     Indication: PYREXIA
     Dosage: 150 MG, Q4W
     Route: 058
     Dates: start: 20140707
  2. BENTYL [Concomitant]
     Active Substance: DICYCLOMINE HYDROCHLORIDE
     Dosage: UNK
     Route: 065
     Dates: start: 20210122
  3. CARAFATE [Concomitant]
     Active Substance: SUCRALFATE
     Indication: BACK PAIN
     Dosage: UNK
     Route: 065
     Dates: start: 20210122
  4. ILARIS [Suspect]
     Active Substance: CANAKINUMAB
     Indication: CRYOPYRIN ASSOCIATED PERIODIC SYNDROME
     Dosage: 150 MG, EVERY 6 WEEKS
     Route: 065
     Dates: start: 20131112
  5. ILARIS [Suspect]
     Active Substance: CANAKINUMAB
     Indication: FAMILIAL MEDITERRANEAN FEVER
     Dosage: 150 MG, EVERY 6 WEEKS
     Route: 058
     Dates: start: 20140717
  6. ILARIS [Suspect]
     Active Substance: CANAKINUMAB
     Dosage: 150 MG (150 MG/ML, EVERY 4 WEEKS)
     Route: 058
  7. PRAZOSINE [Concomitant]
     Active Substance: PRAZOSIN HYDROCHLORIDE
     Indication: PRODUCT USED FOR UNKNOWN INDICATION
     Dosage: UNK
     Route: 065
  8. ILARIS [Suspect]
     Active Substance: CANAKINUMAB
     Dosage: 150 MG, EVERY 6 WEEKS
     Route: 058
     Dates: start: 20191122
  9. BENTYL [Concomitant]
     Active Substance: DICYCLOMINE HYDROCHLORIDE
     Indication: BACK PAIN
     Dosage: 20 MG
     Route: 065
  10. OXCARBAZEPINE. [Concomitant]
     Active Substance: OXCARBAZEPINE
     Indication: PRODUCT USED FOR UNKNOWN INDICATION
     Dosage: UNK
     Route: 065

REACTIONS (18)
  - Cryopyrin associated periodic syndrome [Unknown]
  - Retching [Recovered/Resolved]
  - Abdominal pain lower [Recovering/Resolving]
  - Inappropriate schedule of product administration [Unknown]
  - Influenza like illness [Not Recovered/Not Resolved]
  - Pain [Recovering/Resolving]
  - Nausea [Recovered/Resolved]
  - Insomnia [Not Recovered/Not Resolved]
  - Rhinorrhoea [Recovering/Resolving]
  - Cough [Recovering/Resolving]
  - Condition aggravated [Unknown]
  - Language disorder [Unknown]
  - Product dose omission issue [Unknown]
  - Memory impairment [Unknown]
  - Dyspnoea [Not Recovered/Not Resolved]
  - Headache [Not Recovered/Not Resolved]
  - Productive cough [Unknown]
  - Pain in extremity [Not Recovered/Not Resolved]

NARRATIVE: CASE EVENT DATE: 20201103
